FAERS Safety Report 6608706-0 (Version None)
Quarter: 2010Q1

REPORT INFORMATION
  Report Type: 
  Country: None (occurrence: None)
  Receive Date: 20100301
  Receipt Date: 20100215
  Transmission Date: 20100710
  Serious: Yes (Hospitalization, Other)
  Sender: FDA-Public Use
  Company Number: PHHY2010CN08862

PATIENT
  Age: 65 Year
  Sex: Female

DRUGS (3)
  1. CYCLOSPORINE [Suspect]
     Indication: RENAL TRANSPLANT
     Dosage: 125 MG, BID
  2. PREDNISOLONE [Concomitant]
     Indication: IMMUNOSUPPRESSANT DRUG THERAPY
     Dosage: 5 MG, QD (0.1 MG/KG/DAY)
  3. MYCOPHENOLATE MOFETIL [Concomitant]
     Indication: IMMUNOSUPPRESSANT DRUG THERAPY
     Dosage: 1 G, BID

REACTIONS (6)
  - ARTHROPATHY [None]
  - GOUTY ARTHRITIS [None]
  - GOUTY TOPHUS [None]
  - JOINT EFFUSION [None]
  - SOFT TISSUE DISORDER [None]
  - SYNOVIAL FLUID CRYSTAL PRESENT [None]
